FAERS Safety Report 25515176 (Version 1)
Quarter: 2025Q3

REPORT INFORMATION
  Report Type: Spontaneous
  Country: CN (occurrence: CN)
  Receive Date: 20250703
  Receipt Date: 20250703
  Transmission Date: 20251020
  Serious: Yes (Hospitalization, Other)
  Sender: RANBAXY
  Company Number: CN-SUN PHARMACEUTICAL INDUSTRIES LTD-2025R1-514711

PATIENT
  Age: 63 Year
  Sex: Male

DRUGS (7)
  1. METHYLPREDNISOLONE [Suspect]
     Active Substance: METHYLPREDNISOLONE
     Indication: Immune-mediated myositis
     Dosage: 500 MILLIGRAM, DAILY, 3 CONSECUTIVE DAYS
     Route: 042
  2. METHYLPREDNISOLONE [Suspect]
     Active Substance: METHYLPREDNISOLONE
     Dosage: 240 MILLIGRAM, DAILY,  3 CONSECUTIVE DAYS
     Route: 042
  3. METHYLPREDNISOLONE [Suspect]
     Active Substance: METHYLPREDNISOLONE
     Dosage: 240 MILLIGRAM, DAILY,  3 CONSECUTIVE DAYS
     Route: 042
  4. METHYLPREDNISOLONE [Suspect]
     Active Substance: METHYLPREDNISOLONE
     Dosage: 80 MILLIGRAM, DAILY, 3 CONSECUTIVE DAYS
     Route: 042
  5. PREDNISONE [Suspect]
     Active Substance: PREDNISONE
     Indication: Immune-mediated myositis
     Dosage: 50 MILLIGRAM, DAILY, REDUCED BY 5 MG EVERY 2 WEEKS
     Route: 048
  6. PREDNISONE [Suspect]
     Active Substance: PREDNISONE
     Dosage: 20 MILLIGRAM, DAILY
     Route: 048
  7. MYCOPHENOLATE MOFETIL [Suspect]
     Active Substance: MYCOPHENOLATE MOFETIL
     Indication: Immune-mediated myositis
     Route: 048

REACTIONS (2)
  - Pneumonia [Recovering/Resolving]
  - Condition aggravated [Unknown]
